FAERS Safety Report 4423566-4 (Version None)
Quarter: 2004Q3

REPORT INFORMATION
  Report Type: 
  Country: None (occurrence: None)
  Receive Date: 20040805
  Receipt Date: 20040723
  Transmission Date: 20050211
  Serious: Yes (Hospitalization)
  Sender: FDA-Public Use
  Company Number: GB-JNJFOC-20040706526

PATIENT
  Age: 67 Year
  Sex: Male

DRUGS (11)
  1. REMICADE [Suspect]
     Indication: RHEUMATOID ARTHRITIS
     Dosage: 300 MG, IN 1 DAY, INTRAVENOUS
     Route: 042
     Dates: start: 20011001
  2. PERINDOPRIL (PERINDOPRIL) [Concomitant]
  3. BEZAFIBRATE (BEZAFIBRATE) [Concomitant]
  4. AMLODIPINE [Concomitant]
  5. FUROSEMIDE [Concomitant]
  6. PREDNISOLONE [Concomitant]
  7. LANZOPRAZOLE (LANSOPRAZOLE) [Concomitant]
  8. WARFARIN (WARFARIN) [Concomitant]
  9. METHOTREXATE [Concomitant]
  10. FOLIC ACID [Concomitant]
  11. DIGOXIN [Concomitant]

REACTIONS (1)
  - FEMUR FRACTURE [None]
